FAERS Safety Report 5371416-4 (Version None)
Quarter: 2007Q2

REPORT INFORMATION
  Report Type: 
  Country: None (occurrence: None)
  Receive Date: 20070622
  Receipt Date: 20070613
  Transmission Date: 20071010
  Serious: Yes (Hospitalization)
  Sender: FDA-Public Use
  Company Number: TPA2007A00972

PATIENT
  Age: 70 Year
  Sex: Female
  Weight: 100.6985 kg

DRUGS (6)
  1. PIOGLITAZONE [Suspect]
     Indication: CEREBROVASCULAR ACCIDENT PROPHYLAXIS
     Dosage: 45 MG, 1 IN 1 D, PER ORAL
     Route: 048
     Dates: start: 20050620, end: 20060915
  2. SYNTHROID [Concomitant]
     Indication: CARDIAC DISORDER
  3. PROCARDIA XL [Concomitant]
  4. TOPROL-XL [Concomitant]
  5. PROTONIX [Concomitant]
  6. NEURONTIN [Concomitant]

REACTIONS (2)
  - FALL [None]
  - FIBULA FRACTURE [None]
